FAERS Safety Report 23109843 (Version 3)
Quarter: 2024Q1

REPORT INFORMATION
  Report Type: Spontaneous
  Country: AU (occurrence: AU)
  Receive Date: 20231026
  Receipt Date: 20240119
  Transmission Date: 20240410
  Serious: Yes (Death, Hospitalization, Other)
  Sender: FDA-Public Use
  Company Number: None

PATIENT
  Age: 62 Year
  Sex: Male

DRUGS (14)
  1. LEVETIRACETAM [Suspect]
     Active Substance: LEVETIRACETAM
     Indication: Product used for unknown indication
     Dosage: 750 MILLIGRAM, UNK
     Dates: start: 20230207
  2. MIDAZOLAM [Suspect]
     Active Substance: MIDAZOLAM
     Indication: Product used for unknown indication
     Dosage: UNK
  3. CYCLOPHOSPHAMIDE [Suspect]
     Active Substance: CYCLOPHOSPHAMIDE
     Indication: Product used for unknown indication
     Dosage: UNK, AS A PART OF R-CHOP REGIMEN, 1ST LINE (1) CHEMO 3 CYCLES
     Dates: start: 202210
  4. CARBOPLATIN [Suspect]
     Active Substance: CARBOPLATIN
     Indication: Product used for unknown indication
     Dosage: UNK
  5. DOXORUBICIN HYDROCHLORIDE [Suspect]
     Active Substance: DOXORUBICIN HYDROCHLORIDE
     Indication: Product used for unknown indication
     Dosage: UNK(1ST LINE (1) CHEMO 3 CYCLES)
     Dates: start: 202210
  6. ETOPOSIDE [Suspect]
     Active Substance: ETOPOSIDE
     Indication: Product used for unknown indication
     Dosage: UNK
     Dates: start: 202210
  7. IFOSFAMIDE [Suspect]
     Active Substance: IFOSFAMIDE
     Indication: Product used for unknown indication
     Dosage: UNK
  8. PREDNISONE [Suspect]
     Active Substance: PREDNISONE
     Indication: Product used for unknown indication
     Dosage: UNK, AS A PART OF R-CHOP REGIMEN, 1ST LINE (1) CHEMO 3 CYCLES
     Dates: start: 202210
  9. RITUXIMAB [Suspect]
     Active Substance: RITUXIMAB
     Indication: Product used for unknown indication
     Dosage: UNK, AS A PART OF R-CHOP REGIMEN, 1ST LINE (1) CHEMO 3 CYCLES
     Dates: start: 202210
  10. VINCRISTINE SULFATE [Suspect]
     Active Substance: VINCRISTINE SULFATE
     Indication: Product used for unknown indication
     Dosage: UNK, AS A PART OF R-CHOP REGIMEN, 1ST LINE (1) CHEMO 3 CYCLES
     Dates: start: 202210
  11. BROWN RICE [Suspect]
     Active Substance: BROWN RICE\RICE
     Indication: Product used for unknown indication
     Dosage: UNK
  12. POTASSIUM CHLORIDE [Suspect]
     Active Substance: POTASSIUM CHLORIDE
     Indication: Product used for unknown indication
     Dosage: UNK
  13. SODIUM CHLORIDE [Suspect]
     Active Substance: SODIUM CHLORIDE
     Indication: Product used for unknown indication
     Dosage: UNK
  14. TRISODIUM CITRATE DIHYDRATE [Suspect]
     Active Substance: TRISODIUM CITRATE DIHYDRATE
     Indication: Product used for unknown indication
     Dosage: UNK, AS A PART OF RICE REGIMEN, 2ND LINE-CHEMO (2 CYCLES).

REACTIONS (21)
  - Diffuse large B-cell lymphoma refractory [Fatal]
  - Disease progression [Fatal]
  - Bacteraemia [Fatal]
  - Gastrointestinal haemorrhage [Fatal]
  - Deep vein thrombosis [Fatal]
  - Multiple organ dysfunction syndrome [Fatal]
  - Sepsis [Fatal]
  - Pneumonia [Fatal]
  - Pancytopenia [Fatal]
  - Quadriplegia [Unknown]
  - Brain oedema [Unknown]
  - Cardiac arrest [Unknown]
  - Cytokine release syndrome [Recovered/Resolved]
  - Immune effector cell-associated neurotoxicity syndrome [Unknown]
  - Loss of consciousness [Unknown]
  - Papilloedema [Unknown]
  - Seizure [Unknown]
  - Chest pain [Unknown]
  - Pyrexia [Unknown]
  - Hypotension [Unknown]
  - Tachycardia [Unknown]

NARRATIVE: CASE EVENT DATE: 20230130
